FAERS Safety Report 9215945 (Version 2)
Quarter: 2013Q2

REPORT INFORMATION
  Report Type: Spontaneous
  Country: GB (occurrence: None)
  Receive Date: 20130404
  Receipt Date: 20130419
  Transmission Date: 20140414
  Serious: Yes (Hospitalization)
  Sender: FDA-Public Use
  Company Number: THQ2013A02493

PATIENT
  Age: 49 Year
  Sex: Female

DRUGS (5)
  1. LANSOPRAZOLE (LANSOPRAZOLE) [Suspect]
     Indication: UNEVALUABLE EVENT
  2. DIAZEPAM (DIAZEPAM) [Suspect]
     Indication: UNEVALUABLE EVENT
  3. IBUPROFEN (IBUPROFEN) [Suspect]
     Indication: UNEVALUABLE EVENT
  4. VALPROATE SODIUM [Suspect]
     Indication: EPILEPSY
     Dosage: 6 G  1 IN 1 TOTAL (TOTAL)
     Dates: start: 20030808, end: 20030808
  5. CLOZAPINE [Concomitant]

REACTIONS (8)
  - Feeling hot [None]
  - Ataxia [None]
  - Somnolence [None]
  - Overdose [None]
  - Hyperhidrosis [None]
  - Disturbance in attention [None]
  - Sedation [None]
  - Overdose [None]
